FAERS Safety Report 8211437-7 (Version None)
Quarter: 2012Q1

REPORT INFORMATION
  Report Type: 
  Country: None (occurrence: None)
  Receive Date: 20120315
  Receipt Date: 20120314
  Transmission Date: 20120608
  Serious: Yes (Death)
  Sender: FDA-Public Use
  Company Number: PL-NAPPMUNDI-DEU-2012-0008721

PATIENT
  Sex: Female

DRUGS (3)
  1. OXYCODONE HCL [Suspect]
     Indication: CANCER PAIN
     Dosage: 20 MG, BID
     Route: 048
  2. KETOPROFEN [Concomitant]
     Indication: PRODUCT USED FOR UNKNOWN INDICATION
     Dosage: 100 MG, BID
  3. TRAMADOL HYDROCHLORIDE [Concomitant]
     Indication: PRODUCT USED FOR UNKNOWN INDICATION
     Dosage: 50 MG, TID

REACTIONS (1)
  - NEOPLASM MALIGNANT [None]
